FAERS Safety Report 20777260 (Version 2)
Quarter: 2022Q2

REPORT INFORMATION
  Report Type: Report from Study
  Country: PL (occurrence: None)
  Receive Date: 20220503
  Receipt Date: 20220628
  Transmission Date: 20220720
  Serious: Yes (Death)
  Sender: FDA-Public Use
  Company Number: PL-ROCHE-3087540

PATIENT
  Age: 60 Year
  Sex: Female
  Weight: 66.8 kg

DRUGS (8)
  1. RITUXIMAB [Suspect]
     Active Substance: RITUXIMAB
     Indication: Chronic lymphocytic leukaemia
     Dosage: ON 12/APR/2022, THE PATIENT RECEIVED  THE LAST DOSE OF RITUXIMAB PRIOR TO EVENT ONSET AT A DOSE OF 5
     Route: 042
     Dates: start: 20220315
  2. IDELALISIB [Suspect]
     Active Substance: IDELALISIB
     Indication: Chronic lymphocytic leukaemia
     Dosage: ON AN UNSPECIFIED DATE IN /MAR/2022, THE PATIENT RECEIVED THE LAST DOSE OF IDELALISIB AT A DOSE OF 1
     Route: 048
     Dates: start: 20220315
  3. VENETOCLAX [Concomitant]
     Active Substance: VENETOCLAX
     Dates: start: 20211104, end: 20220224
  4. METOPROLOL TARTRATE [Concomitant]
     Active Substance: METOPROLOL TARTRATE
     Dates: start: 202111
  5. BISEPTOL [Concomitant]
     Active Substance: SULFAMETHOXAZOLE\TRIMETHOPRIM
     Dates: start: 202111
  6. ACYCLOVIR [Concomitant]
     Active Substance: ACYCLOVIR
     Dates: start: 2019
  7. FENOFIBRATE [Concomitant]
     Active Substance: FENOFIBRATE
     Dates: start: 2020
  8. ALLOPURINOL [Concomitant]
     Active Substance: ALLOPURINOL
     Dates: start: 20220315

REACTIONS (1)
  - General physical health deterioration [Fatal]

NARRATIVE: CASE EVENT DATE: 20220417
